FAERS Safety Report 16898130 (Version 3)
Quarter: 2020Q2

REPORT INFORMATION
  Report Type: Spontaneous
  Country: ES (occurrence: ES)
  Receive Date: 20191009
  Receipt Date: 20200616
  Transmission Date: 20200713
  Serious: Yes (Death, Life-Threatening, Hospitalization, Other)
  Sender: FDA-Public Use
  Company Number: ES-ACCORD-156138

PATIENT
  Age: 78 Year
  Sex: Male

DRUGS (1)
  1. MITOMYCIN. [Suspect]
     Active Substance: MITOMYCIN
     Indication: BLADDER CANCER
     Dosage: NUMBER OF SHOTS PER UNIT OF FREQUENCY:?1 NUMBER OF UNITS OF FREQUENCY: 1 WEEK
     Route: 043
     Dates: start: 20170522, end: 20170605

REACTIONS (4)
  - Venoocclusive liver disease [Fatal]
  - Rash [Fatal]
  - Pyrexia [Fatal]
  - Bone marrow failure [Fatal]

NARRATIVE: CASE EVENT DATE: 20170605
